FAERS Safety Report 4268116-0 (Version None)
Quarter: 2004Q1

REPORT INFORMATION
  Report Type: 
  Country: None (occurrence: None)
  Receive Date: 20040109
  Receipt Date: 20040109
  Transmission Date: 20041129
  Serious: Yes (Hospitalization)
  Sender: FDA-Public Use
  Company Number: None

PATIENT
  Age: 20 Year
  Sex: Female
  Weight: 62.1428 kg

DRUGS (2)
  1. CELEXA [Suspect]
     Indication: ANXIETY
     Dosage: 20 MG ONCE A DAY, 10 MG ONCE A DAY
  2. CELEXA [Suspect]
     Indication: DEPRESSION
     Dosage: 20 MG ONCE A DAY, 10 MG ONCE A DAY

REACTIONS (9)
  - ANXIETY [None]
  - DIZZINESS [None]
  - FATIGUE [None]
  - FEELING HOT AND COLD [None]
  - HYPERHIDROSIS [None]
  - MALAISE [None]
  - NAUSEA [None]
  - NERVOUSNESS [None]
  - TREMOR [None]
